FAERS Safety Report 25248118 (Version 1)
Quarter: 2025Q2

REPORT INFORMATION
  Report Type: Spontaneous
  Country: CN (occurrence: CN)
  Receive Date: 20250429
  Receipt Date: 20250429
  Transmission Date: 20250716
  Serious: Yes (Hospitalization, Other)
  Sender: BAXTER
  Company Number: None

PATIENT
  Age: 6 Year
  Sex: Female
  Weight: 20 kg

DRUGS (6)
  1. CYCLOPHOSPHAMIDE [Suspect]
     Active Substance: CYCLOPHOSPHAMIDE
     Indication: Retroperitoneal cancer
     Dosage: 0.4 G, QD
     Route: 041
     Dates: start: 20250308, end: 20250311
  2. DEXTROSE\SODIUM CHLORIDE [Suspect]
     Active Substance: DEXTROSE\SODIUM CHLORIDE
     Dosage: 250 ML, QD (CYCLOPHOSPHAMIDE) (4:1)
     Route: 041
     Dates: start: 20250308, end: 20250311
  3. SODIUM CHLORIDE [Suspect]
     Active Substance: SODIUM CHLORIDE
     Dosage: 250 ML, QD, 0.9% (WITH IRINOTECAN)
     Route: 041
     Dates: start: 20250308, end: 20250310
  4. SODIUM CHLORIDE [Suspect]
     Active Substance: SODIUM CHLORIDE
     Dosage: 50 ML, QD, 0.9% (WITH VINDESINE)
     Route: 041
     Dates: start: 20250308, end: 20250308
  5. VINDESINE SULFATE [Suspect]
     Active Substance: VINDESINE SULFATE
     Indication: Retroperitoneal cancer
     Dosage: 2.4 MG, QD
     Route: 041
     Dates: start: 20250308, end: 20250408
  6. IRINOTECAN HYDROCHLORIDE [Suspect]
     Active Substance: IRINOTECAN HYDROCHLORIDE
     Indication: Retroperitoneal cancer
     Dosage: 96 MG, QD
     Route: 041
     Dates: start: 20250308, end: 20250310

REACTIONS (1)
  - Myelosuppression [Recovering/Resolving]

NARRATIVE: CASE EVENT DATE: 20250313
